FAERS Safety Report 7888978-5 (Version None)
Quarter: 2011Q4

REPORT INFORMATION
  Report Type: 
  Country: None (occurrence: None)
  Receive Date: 20111103
  Receipt Date: 20111025
  Transmission Date: 20120403
  Serious: Yes (Life-Threatening, Hospitalization)
  Sender: FDA-Public Use
  Company Number: CZ-TEVA-307639ISR

PATIENT
  Age: 9 Year
  Sex: Male
  Weight: 25.7 kg

DRUGS (15)
  1. PREDNISOLONE [Suspect]
     Dosage: 20 MILLIGRAM;
     Route: 037
     Dates: start: 20111005, end: 20111005
  2. FORTECORTIN [Suspect]
     Dosage: 8 MILLIGRAM;
     Route: 048
     Dates: start: 20111004, end: 20111007
  3. ZOFRAN [Concomitant]
     Dates: start: 20111004, end: 20111009
  4. OMEPRAZOLE [Concomitant]
     Dates: start: 20111007, end: 20111008
  5. NOVALGIN [Concomitant]
     Dates: start: 20111004
  6. DOXORUBICIN HCL [Suspect]
     Dosage: 25.75 MILLIGRAM;
     Route: 042
     Dates: start: 20111007, end: 20111008
  7. CYTARABINE [Suspect]
     Route: 037
     Dates: start: 20111005, end: 20111005
  8. DEXAMETHASONE SODIUM PHOSPHATE [Suspect]
     Dosage: 8 MILLIGRAM;
     Route: 042
     Dates: start: 20111007, end: 20111009
  9. BACLOFEN [Concomitant]
     Dates: start: 20111006
  10. VINCRISTINE [Suspect]
     Dosage: 8 MILLIGRAM;
     Route: 042
     Dates: start: 20111007, end: 20111009
  11. VORICONAZOLE [Suspect]
  12. ACETAMINOPHEN [Concomitant]
     Dates: start: 20111004
  13. METHOTREXATE [Suspect]
     Dosage: 12 MILLIGRAM;
     Route: 037
     Dates: start: 20111005, end: 20111005
  14. CYCLOPHOSPHAMIDE [Suspect]
     Dosage: 412 MILLIGRAM;
     Route: 042
     Dates: start: 20111005, end: 20111008
  15. FUROSEMIDE [Concomitant]
     Dates: start: 20111004

REACTIONS (1)
  - POSTERIOR REVERSIBLE ENCEPHALOPATHY SYNDROME [None]
